FAERS Safety Report 17329506 (Version 4)
Quarter: 2020Q2

REPORT INFORMATION
  Report Type: Spontaneous
  Country: US (occurrence: US)
  Receive Date: 20200127
  Receipt Date: 20200412
  Transmission Date: 20200713
  Serious: Yes (Other)
  Sender: FDA-Public Use
  Company Number: US-SA-2020SA019859

PATIENT
  Age: 59 Year
  Sex: Female

DRUGS (1)
  1. LANTUS SOLOSTAR [Suspect]
     Active Substance: INSULIN GLARGINE
     Indication: TYPE 1 DIABETES MELLITUS
     Dosage: 16 IU, QD
     Route: 065

REACTIONS (3)
  - Blood glucose increased [Recovering/Resolving]
  - Diabetes mellitus inadequate control [Recovering/Resolving]
  - Blood glucose increased [Unknown]
